FAERS Safety Report 6366842-0 (Version None)
Quarter: 2009Q3

REPORT INFORMATION
  Report Type: 
  Country: None (occurrence: None)
  Receive Date: 20090921
  Receipt Date: 20090917
  Transmission Date: 20100115
  Serious: Yes (Death)
  Sender: FDA-Public Use
  Company Number: US-ASTRAZENECA-2009SE13268

PATIENT
  Age: 47 Year
  Sex: Female

DRUGS (6)
  1. SEROQUEL [Suspect]
  2. ABILIFY [Suspect]
  3. LEXAPRO [Concomitant]
  4. TOPROL-XL [Concomitant]
  5. COLACE [Concomitant]
  6. METAMUCIL [Concomitant]

REACTIONS (2)
  - CONSTIPATION [None]
  - FAECALOMA [None]
